FAERS Safety Report 20151022 (Version 1)
Quarter: 2021Q4

REPORT INFORMATION
  Report Type: Spontaneous
  Country: US (occurrence: None)
  Receive Date: 20211203
  Receipt Date: 20211203
  Transmission Date: 20220303
  Serious: Yes (Hospitalization)
  Sender: FDA-Public Use
  Company Number: None

PATIENT
  Age: 71 Year
  Sex: Male

DRUGS (29)
  1. OPSUMIT [Suspect]
     Active Substance: MACITENTAN
     Indication: Pulmonary arterial hypertension
     Dosage: FREQUENCY : DAILY;?
     Route: 048
     Dates: start: 20160812
  2. SILDENAFIL [Concomitant]
  3. NORCO [Concomitant]
     Active Substance: ACETAMINOPHEN\HYDROCODONE BITARTRATE
  4. TORSEMIDE [Suspect]
     Active Substance: TORSEMIDE
  5. HYDROMORPHONE [Concomitant]
  6. DULOXETINE [Concomitant]
  7. SEPTRA DS [Concomitant]
  8. AMLODIPINE [Concomitant]
     Active Substance: AMLODIPINE BESYLATE
  9. TRAZODONE [Concomitant]
  10. MYCOPHENOLATE [Concomitant]
  11. Aspirin [Concomitant]
  12. ATORVASTATIN [Concomitant]
  13. ALLOPURINOL [Concomitant]
  14. PREDNISONE [Concomitant]
  15. Albuterol Neb Soln [Concomitant]
  16. IPRATROPIUM [Concomitant]
  17. Inhl Soln [Concomitant]
  18. AMIODARONE [Concomitant]
  19. SPIRIVA RESPIMAT [Concomitant]
  20. HYDROXYCHLOROQUINE [Concomitant]
  21. DICLOFENAC [Concomitant]
  22. MELATONIN [Concomitant]
  23. Flonase [Concomitant]
  24. Senna [Concomitant]
  25. COLACE [Concomitant]
  26. VITAMIN D3 [Concomitant]
     Active Substance: CHOLECALCIFEROL
  27. OMEPRAZOLE [Concomitant]
  28. ATOVAQUONE [Concomitant]
  29. ALBUTEROL HFA [Concomitant]

REACTIONS (1)
  - Cardiac failure [None]

NARRATIVE: CASE EVENT DATE: 20211129
